FAERS Safety Report 10305155 (Version 1)
Quarter: 2014Q3

REPORT INFORMATION
  Report Type: Spontaneous
  Country: FR (occurrence: None)
  Receive Date: 20140710
  Receipt Date: 20140710
  Transmission Date: 20150326
  Serious: Yes (Other)
  Sender: FDA-Public Use
  Company Number: 2014P1002518

PATIENT
  Age: 62 Year
  Sex: Female

DRUGS (2)
  1. VANCOMYCIN [Suspect]
     Active Substance: VANCOMYCIN
  2. AMIKACIN [Suspect]
     Active Substance: AMIKACIN

REACTIONS (2)
  - Drug reaction with eosinophilia and systemic symptoms [None]
  - Skin test positive [None]
